FAERS Safety Report 13371992 (Version 1)
Quarter: 2017Q1

REPORT INFORMATION
  Report Type: Spontaneous
  Country: RS (occurrence: RS)
  Receive Date: 20170326
  Receipt Date: 20170326
  Transmission Date: 20170429
  Serious: Yes (Other)
  Sender: FDA-Public Use
  Company Number: RS-BAXTER-2017BAX012606

PATIENT
  Age: 67 Year
  Sex: Female

DRUGS (3)
  1. AMINOPHILLIN [Suspect]
     Active Substance: AMINOPHYLLINE
     Indication: PRODUCT USED FOR UNKNOWN INDICATION
     Route: 041
     Dates: start: 20160914, end: 20160914
  2. LEMOD SOLU [Suspect]
     Active Substance: METHYLPREDNISOLONE SODIUM SUCCINATE
     Indication: PRODUCT USED FOR UNKNOWN INDICATION
     Dosage: AMPOULES DRY
     Route: 041
     Dates: start: 20160914, end: 20160914
  3. NATRII CHLORIDI INFUNDIBILE 0.9% [Suspect]
     Active Substance: SODIUM CHLORIDE
     Indication: PRODUCT USED FOR UNKNOWN INDICATION
     Route: 041
     Dates: start: 20160914, end: 20160914

REACTIONS (3)
  - Infusion related reaction [None]
  - Hypertension [Recovered/Resolved]
  - Suffocation feeling [Recovered/Resolved]

NARRATIVE: CASE EVENT DATE: 20160914
